FAERS Safety Report 20006950 (Version 1)
Quarter: 2021Q4

REPORT INFORMATION
  Report Type: Report from Study
  Country: GB (occurrence: GB)
  Receive Date: 20211028
  Receipt Date: 20211028
  Transmission Date: 20220303
  Serious: Yes (Other)
  Sender: FDA-Public Use
  Company Number: GB-BOEHRINGERINGELHEIM-2021-BI-134480

PATIENT
  Age: 49 Year
  Sex: Male

DRUGS (5)
  1. EMPAGLIFLOZIN [Suspect]
     Active Substance: EMPAGLIFLOZIN
     Indication: COVID-19
     Route: 048
     Dates: start: 20210920, end: 20211011
  2. FLUCLOXACILLIN [Concomitant]
     Active Substance: FLUCLOXACILLIN
     Indication: Product used for unknown indication
     Dosage: FORM: INTRAVENOUS INFUSION
     Route: 042
     Dates: start: 20211004
  3. DALTEPARIN [Concomitant]
     Active Substance: DALTEPARIN
     Indication: Pulmonary embolism
     Dosage: 18000
     Route: 058
     Dates: start: 20211005
  4. ACETAMINOPHEN [Concomitant]
     Active Substance: ACETAMINOPHEN
     Indication: Product used for unknown indication
     Route: 048
     Dates: start: 20211005
  5. MORPHINE [Concomitant]
     Active Substance: MORPHINE
     Indication: Pain
     Route: 048
     Dates: start: 20211008

REACTIONS (2)
  - Ketosis [Recovering/Resolving]
  - Diabetes with hyperosmolarity [Recovering/Resolving]

NARRATIVE: CASE EVENT DATE: 20211011
